FAERS Safety Report 22616783 (Version 1)
Quarter: 2023Q2

REPORT INFORMATION
  Report Type: Spontaneous
  Country: HU (occurrence: None)
  Receive Date: 20230619
  Receipt Date: 20230619
  Transmission Date: 20230721
  Serious: Yes (Other)
  Sender: FDA-Public Use
  Company Number: HU-ROCHE-3368309

PATIENT
  Age: 77 Year
  Sex: Female

DRUGS (1)
  1. ALECTINIB [Suspect]
     Active Substance: ALECTINIB
     Indication: Adenocarcinoma
     Dosage: DOSE REDUCTION: 2 X 300 MG PROVED TO BE THE MAXIMUM TOLERATED DOSE
     Route: 065
     Dates: start: 20220921

REACTIONS (5)
  - Toxic skin eruption [Unknown]
  - Asthenia [Unknown]
  - Myalgia [Unknown]
  - Nausea [Unknown]
  - Vomiting [Unknown]
